FAERS Safety Report 8010199-6 (Version None)
Quarter: 2011Q4

REPORT INFORMATION
  Report Type: 
  Country: None (occurrence: None)
  Receive Date: 20111228
  Receipt Date: 20111216
  Transmission Date: 20120403
  Serious: Yes (Life-Threatening)
  Sender: FDA-Public Use
  Company Number: PL-JNJFOC-20111204302

PATIENT
  Age: 27 Year
  Sex: Male
  Weight: 68 kg

DRUGS (3)
  1. DARUNAVIR ETHANOLATE [Suspect]
     Indication: HIV INFECTION
     Route: 048
     Dates: start: 20110620, end: 20111204
  2. RALTEGRAVIR [Suspect]
     Indication: HIV INFECTION
     Route: 048
     Dates: start: 20110620, end: 20111204
  3. NORVIR [Suspect]
     Indication: HIV INFECTION
     Route: 048
     Dates: start: 20110620, end: 20111204

REACTIONS (1)
  - BLOOD CREATINE PHOSPHOKINASE INCREASED [None]
